FAERS Safety Report 18980232 (Version 1)
Quarter: 2021Q1

REPORT INFORMATION
  Report Type: Report from Study
  Country: ES (occurrence: ES)
  Receive Date: 20210308
  Receipt Date: 20210308
  Transmission Date: 20210420
  Serious: Yes (Other)
  Sender: FDA-Public Use
  Company Number: ES-BEH-2021129083

PATIENT
  Age: 59 Year
  Sex: Female
  Weight: 148 kg

DRUGS (2)
  1. RIASTAP [Suspect]
     Active Substance: FIBRINOGEN HUMAN
     Indication: LIVER TRANSPLANT
     Dosage: 14 GRAM, TOT
     Route: 042
     Dates: start: 20191023, end: 20191023
  2. RIASTAP [Suspect]
     Active Substance: FIBRINOGEN HUMAN
     Indication: HYPOFIBRINOGENAEMIA

REACTIONS (3)
  - Off label use [Unknown]
  - Procedural haemorrhage [Recovered/Resolved]
  - No adverse event [Unknown]

NARRATIVE: CASE EVENT DATE: 20191023
